FAERS Safety Report 9026785 (Version 3)
Quarter: 2013Q1

REPORT INFORMATION
  Report Type: Report from Study
  Country: US (occurrence: US)
  Receive Date: 20130123
  Receipt Date: 20130319
  Transmission Date: 20140127
  Serious: Yes (Other)
  Sender: FDA-Public Use
  Company Number: US-ASTELLAS-2012US006599

PATIENT
  Age: 63 Year
  Sex: Female

DRUGS (5)
  1. ERLOTINIB TABLET [Suspect]
     Indication: LUNG NEOPLASM MALIGNANT
     Dosage: 100 MG, UID/QD
     Route: 048
  2. ERLOTINIB TABLET [Suspect]
     Dosage: 75 MG, UID/QD
     Route: 048
     Dates: start: 20120320, end: 20121030
  3. ERLOTINIB TABLET [Suspect]
     Dosage: 100 MG, UID/QD
     Route: 048
     Dates: start: 20130110
  4. DOXYCYCLINE [Concomitant]
     Indication: RASH
     Dosage: 100 MG, UID/QD
     Route: 048
  5. METRONIDAZOLE                      /00012502/ [Concomitant]
     Indication: PRODUCT USED FOR UNKNOWN INDICATION

REACTIONS (6)
  - Neoplasm [None]
  - Dermatitis acneiform [Recovered/Resolved]
  - Dermatitis bullous [Unknown]
  - Influenza like illness [Unknown]
  - Furuncle [Unknown]
  - Pruritus [Unknown]
